FAERS Safety Report 20098782 (Version 1)
Quarter: 2021Q4

REPORT INFORMATION
  Report Type: Spontaneous
  Country: US (occurrence: US)
  Receive Date: 20211122
  Receipt Date: 20211122
  Transmission Date: 20220303
  Serious: Yes (Hospitalization, Other)
  Sender: FDA-Public Use
  Company Number: US-PFIZER INC-202101116774

PATIENT
  Age: 68 Year
  Sex: Male
  Weight: 94.8 kg

DRUGS (2)
  1. RAPAMUNE [Suspect]
     Active Substance: SIROLIMUS
     Indication: Lung transplant
     Dosage: 2 MG, DAILY
     Route: 048
  2. RAPAMUNE [Suspect]
     Active Substance: SIROLIMUS
     Dosage: 0.5 MG, 1X/DAY

REACTIONS (6)
  - Infection [Recovering/Resolving]
  - Transplant rejection [Unknown]
  - Aspergillus infection [Unknown]
  - Off label use [Unknown]
  - Drug level increased [Recovered/Resolved]
  - Body height decreased [Unknown]
